FAERS Safety Report 5244395-8 (Version None)
Quarter: 2007Q1

REPORT INFORMATION
  Report Type: 
  Country: None (occurrence: None)
  Receive Date: 20070222
  Receipt Date: 20070213
  Transmission Date: 20070707
  Serious: Yes (Other)
  Sender: FDA-Public Use
  Company Number: KR-PFIZER INC-2007004704

PATIENT
  Age: 49 Year
  Sex: Male

DRUGS (2)
  1. DETRUSITOL [Suspect]
     Indication: HYPERTONIC BLADDER
     Route: 048
     Dates: start: 20010901, end: 20040301
  2. TAMSULOSIN HCL [Concomitant]
     Route: 048

REACTIONS (1)
  - BLADDER CANCER [None]
